FAERS Safety Report 22658407 (Version 1)
Quarter: 2023Q2

REPORT INFORMATION
  Report Type: Report from Study
  Country: MX (occurrence: MX)
  Receive Date: 20230630
  Receipt Date: 20230630
  Transmission Date: 20230722
  Serious: Yes (Other)
  Sender: FDA-Public Use
  Company Number: MX-Merck Healthcare KGaA-2023458081

PATIENT
  Age: 10 Year
  Sex: Female

DRUGS (1)
  1. SAIZEN [Suspect]
     Active Substance: SOMATROPIN
     Indication: Growth hormone deficiency
     Route: 058
     Dates: start: 20220910

REACTIONS (2)
  - Appendicectomy [Unknown]
  - Gastritis [Unknown]

NARRATIVE: CASE EVENT DATE: 20221201
